FAERS Safety Report 4322610-2 (Version None)
Quarter: 2004Q1

REPORT INFORMATION
  Report Type: 
  Country: None (occurrence: None)
  Receive Date: 20040324
  Receipt Date: 20040315
  Transmission Date: 20041129
  Serious: Yes (Hospitalization)
  Sender: FDA-Public Use
  Company Number: WAES 0403FRA00054

PATIENT
  Age: 30 Year
  Sex: Male

DRUGS (2)
  1. CAMYLOFIN HYDROCHLORIDE AND DIPYRONE [Suspect]
     Route: 030
  2. THIABENDAZOLE [Suspect]
     Route: 048
     Dates: start: 19951006, end: 19951006

REACTIONS (3)
  - BRADYCARDIA [None]
  - DRUG ABUSER [None]
  - ELECTROCARDIOGRAM QT PROLONGED [None]
